FAERS Safety Report 5879369-7 (Version None)
Quarter: 2008Q3

REPORT INFORMATION
  Report Type: 
  Country: None (occurrence: None)
  Receive Date: 20080912
  Receipt Date: 20080904
  Transmission Date: 20090109
  Serious: Yes (Hospitalization)
  Sender: FDA-Public Use
  Company Number: A0747153A

PATIENT
  Age: 72 Year
  Sex: Female
  Weight: 59.1 kg

DRUGS (3)
  1. AVANDIA [Suspect]
     Indication: DRUG USE FOR UNKNOWN INDICATION
     Dosage: 4MG PER DAY
     Dates: start: 20040101, end: 20070101
  2. GLUCOPHAGE [Concomitant]
     Dates: start: 20000101
  3. GLUCOTROL [Concomitant]
     Dates: start: 20000101

REACTIONS (6)
  - CARDIAC DISORDER [None]
  - DIZZINESS [None]
  - DYSPNOEA [None]
  - FATIGUE [None]
  - MYOCARDIAL INFARCTION [None]
  - VISUAL IMPAIRMENT [None]
